FAERS Safety Report 9069362 (Version 1)
Quarter: 2013Q1

REPORT INFORMATION
  Report Type: Spontaneous
  Country: US (occurrence: US)
  Receive Date: 20130215
  Receipt Date: 20130215
  Transmission Date: 20140127
  Serious: Yes (Death)
  Sender: FDA-Public Use
  Company Number: US-BANPHARM-20130833

PATIENT
  Age: 31 Year
  Sex: Female

DRUGS (4)
  1. DIPHENHYDRAMINE [Suspect]
  2. METHAMPHETAMINE [Suspect]
  3. ETHANOL [Suspect]
  4. AMPHETAMINE [Suspect]

REACTIONS (1)
  - Death [Fatal]
